FAERS Safety Report 16945540 (Version 1)
Quarter: 2019Q4

REPORT INFORMATION
  Report Type: Spontaneous
  Country: FR (occurrence: FR)
  Receive Date: 20191022
  Receipt Date: 20191022
  Transmission Date: 20200122
  Serious: Yes (Hospitalization)
  Sender: FDA-Public Use
  Company Number: FR-ABBVIE-19K-056-2971803-00

PATIENT
  Age: 35 Year
  Sex: Male
  Weight: 80 kg

DRUGS (3)
  1. COSENTYX [Suspect]
     Active Substance: SECUKINUMAB
     Indication: PRODUCT USED FOR UNKNOWN INDICATION
     Route: 065
  2. SECUKINUMAB. [Suspect]
     Active Substance: SECUKINUMAB
     Indication: PSORIATIC ARTHROPATHY
     Route: 058
     Dates: start: 201905, end: 201906
  3. ADALIMUMAB [Suspect]
     Active Substance: ADALIMUMAB
     Indication: PSORIATIC ARTHROPATHY
     Route: 058
     Dates: start: 201809, end: 201905

REACTIONS (3)
  - Pyoderma gangrenosum [Recovering/Resolving]
  - Testicular pain [Recovering/Resolving]
  - Pulmonary mass [Recovering/Resolving]

NARRATIVE: CASE EVENT DATE: 201907
